FAERS Safety Report 9614492 (Version 2)
Quarter: 2013Q4

REPORT INFORMATION
  Report Type: Spontaneous
  Country: US (occurrence: US)
  Receive Date: 20131011
  Receipt Date: 20131122
  Transmission Date: 20140711
  Serious: No
  Sender: FDA-Public Use
  Company Number: US-009507513-1310USA001605

PATIENT
  Age: 48 Year
  Sex: Female

DRUGS (4)
  1. VICTRELIS [Suspect]
     Indication: HEPATITIS C
     Dosage: THREE TIMES DAILY
     Route: 048
     Dates: start: 201307
  2. PEGINTRON [Suspect]
     Indication: HEPATITIS C
     Dosage: ONCE WEEKLY
     Dates: start: 201307
  3. REBETOL [Suspect]
     Dosage: TWICE DAILY
     Route: 048
     Dates: start: 201307
  4. INCIVEK [Suspect]
     Dosage: UNK
     Dates: end: 2013

REACTIONS (1)
  - Rash [Not Recovered/Not Resolved]
